FAERS Safety Report 6616035-4 (Version None)
Quarter: 2010Q1

REPORT INFORMATION
  Report Type: 
  Country: None (occurrence: None)
  Receive Date: 20100305
  Receipt Date: 20100223
  Transmission Date: 20100710
  Serious: Yes (Hospitalization)
  Sender: FDA-Public Use
  Company Number: B0636978A

PATIENT
  Age: 55 Year
  Sex: Female

DRUGS (3)
  1. AVANDAMET [Suspect]
     Dosage: 500MG PER DAY
     Route: 065
     Dates: start: 20100217, end: 20100222
  2. LANTUS [Concomitant]
     Dates: start: 20100209
  3. JANUMET [Concomitant]

REACTIONS (4)
  - HAEMATURIA [None]
  - HAEMORRHAGE [None]
  - PLATELET COUNT DECREASED [None]
  - THROMBOCYTOPENIA [None]
